FAERS Safety Report 9689509 (Version 2)
Quarter: 2013Q4

REPORT INFORMATION
  Report Type: Spontaneous
  Country: CO (occurrence: CO)
  Receive Date: 20131115
  Receipt Date: 20131115
  Transmission Date: 20140711
  Serious: Yes (Other)
  Sender: FDA-Public Use
  Company Number: CO-AMGEN-COLSP2013032878

PATIENT
  Age: 43 Year
  Sex: Female

DRUGS (8)
  1. ENBREL [Suspect]
     Indication: RHEUMATOID ARTHRITIS
     Dosage: 50 MG, WEEKLY
     Route: 058
     Dates: start: 2012, end: 201304
  2. PREDNISOLON                        /00016201/ [Concomitant]
     Indication: RHEUMATOID ARTHRITIS
     Dosage: 5 MG, 1X/DAY
     Route: 048
     Dates: start: 2010
  3. CHLOROQUINE [Concomitant]
     Indication: RHEUMATOID ARTHRITIS
     Dosage: UNK UNK, QD
     Route: 048
     Dates: start: 2010
  4. CHLOROQUINE [Concomitant]
     Dosage: UNK
     Route: 048
     Dates: start: 2010
  5. ACETAMINOPHEN [Concomitant]
     Indication: PAIN
     Dosage: 500 MG, 1X/DAY
     Route: 048
     Dates: start: 2010
  6. ACETAMINOPHEN [Concomitant]
     Dosage: 500 MG, 1X/DAY
     Route: 048
     Dates: start: 2009
  7. OMEPRAZOL                          /00661201/ [Concomitant]
     Indication: PROPHYLAXIS
     Dosage: UNK UNK, QD
     Route: 048
     Dates: start: 2010
  8. NAPROXEN [Concomitant]
     Indication: PAIN
     Dosage: 250 MG, 1X/DAY
     Route: 048
     Dates: start: 2009

REACTIONS (2)
  - Hepatic steatosis [Not Recovered/Not Resolved]
  - Urinary tract infection [Not Recovered/Not Resolved]
